FAERS Safety Report 6709013-8 (Version None)
Quarter: 2010Q2

REPORT INFORMATION
  Report Type: 
  Country: None (occurrence: None)
  Receive Date: 20100504
  Receipt Date: 20100422
  Transmission Date: 20101027
  Serious: Yes (Other)
  Sender: FDA-Public Use
  Company Number: US-CELGENEUS-163-21880-09061641

PATIENT
  Sex: Female

DRUGS (4)
  1. REVLIMID [Suspect]
     Indication: MULTIPLE MYELOMA
     Route: 048
     Dates: start: 20090101, end: 20090701
  2. REVLIMID [Suspect]
     Route: 048
     Dates: start: 20090424, end: 20090101
  3. REVLIMID [Suspect]
     Route: 048
     Dates: start: 20090901
  4. REVLIMID [Suspect]
     Route: 048
     Dates: start: 20100101

REACTIONS (11)
  - AGEUSIA [None]
  - ARTHRALGIA [None]
  - BLOOD COUNT ABNORMAL [None]
  - BLOOD CREATININE INCREASED [None]
  - CONSTIPATION [None]
  - HYPERSENSITIVITY [None]
  - JOINT STIFFNESS [None]
  - MUSCLE SPASMS [None]
  - NEUROPATHY PERIPHERAL [None]
  - RASH MACULO-PAPULAR [None]
  - RENAL IMPAIRMENT [None]
